FAERS Safety Report 20689759 (Version 1)
Quarter: 2022Q2

REPORT INFORMATION
  Report Type: Spontaneous
  Country: US (occurrence: US)
  Receive Date: 20220408
  Receipt Date: 20220408
  Transmission Date: 20220720
  Serious: Yes (Other)
  Sender: FDA-Public Use
  Company Number: US-drreddys-SPO/USA/22/0148414

PATIENT
  Age: 21 Year
  Sex: Female

DRUGS (2)
  1. ACCUTANE [Suspect]
     Active Substance: ISOTRETINOIN
     Indication: Product used for unknown indication
     Dosage: RMA ISSUE DATE: 24/FEBRUARY/2022 09:02:18 AM, 20/JANUARY/2022 01:19:01 PM, 21/DECEMBER/2021 12:00:08
  2. ACCUTANE [Suspect]
     Active Substance: ISOTRETINOIN
     Dosage: RMA ISSUE DATE: 20/OCTOBER/2021 12:00:00 AM

REACTIONS (2)
  - Rectal haemorrhage [Unknown]
  - Rectal fissure [Unknown]
